FAERS Safety Report 13864433 (Version 1)
Quarter: 2017Q3

REPORT INFORMATION
  Report Type: Report from Study
  Country: ES (occurrence: ES)
  Receive Date: 20170814
  Receipt Date: 20170814
  Transmission Date: 20171127
  Serious: Yes (Other)
  Sender: FDA-Public Use
  Company Number: ES-ROCHE-1974732

PATIENT
  Age: 47 Year
  Sex: Male
  Weight: 84 kg

DRUGS (6)
  1. PARACETAMOL [Concomitant]
     Active Substance: ACETAMINOPHEN
  2. RITUXIMAB. [Suspect]
     Active Substance: RITUXIMAB
     Indication: ANTIPHOSPHOLIPID SYNDROME
     Route: 042
     Dates: start: 20160803, end: 20160810
  3. APIXABAN [Concomitant]
     Active Substance: APIXABAN
  4. INSULIN [Concomitant]
     Active Substance: INSULIN NOS
  5. OMEPRAZOLE. [Concomitant]
     Active Substance: OMEPRAZOLE
  6. LEVETIRACETAM. [Concomitant]
     Active Substance: LEVETIRACETAM

REACTIONS (4)
  - Intentional product use issue [Unknown]
  - Haemoptysis [Recovered/Resolved]
  - Ischaemic stroke [Recovered/Resolved]
  - Off label use [Unknown]

NARRATIVE: CASE EVENT DATE: 20160812
